FAERS Safety Report 4881800-0 (Version None)
Quarter: 2006Q1

REPORT INFORMATION
  Report Type: 
  Country: None (occurrence: None)
  Receive Date: 20060112
  Receipt Date: 20051230
  Transmission Date: 20060701
  Serious: Yes (Hospitalization, Other)
  Sender: FDA-Public Use
  Company Number: 2006000124

PATIENT
  Age: 27 Year
  Sex: Female
  Weight: 97.977 kg

DRUGS (2)
  1. SOMAVERT [Suspect]
     Indication: ACROMEGALY
     Dosage: 20 MG (20 MG, EVERY DAY), UNKNOWN
     Dates: start: 20051101
  2. DRUG, UNSPECIFIED (DRUG UNSPECIFIED) [Concomitant]

REACTIONS (6)
  - EAR DISORDER [None]
  - EAR INFECTION [None]
  - EAR PAIN [None]
  - PYREXIA [None]
  - SWELLING FACE [None]
  - VIRAL INFECTION [None]
